FAERS Safety Report 13781204 (Version 1)
Quarter: 2017Q3

REPORT INFORMATION
  Report Type: Spontaneous
  Country: US (occurrence: US)
  Receive Date: 20170723
  Receipt Date: 20170723
  Transmission Date: 20171127
  Serious: Yes (Life-Threatening)
  Sender: FDA-Public Use
  Company Number: None

PATIENT
  Age: 9 Year
  Sex: Female
  Weight: 42.3 kg

DRUGS (2)
  1. CLARITIN [Suspect]
     Active Substance: LORATADINE
     Indication: HYPERSENSITIVITY
     Dosage: ?          OTHER STRENGTH:MG;QUANTITY:1 TABLET(S);?
     Route: 048
     Dates: start: 20170719, end: 20170723
  2. AMOXICILLIN/K CLAV GENERIC FOR AUGMENTIN [Concomitant]

REACTIONS (5)
  - Fear [None]
  - Anxiety [None]
  - Hyperhidrosis [None]
  - Thirst [None]
  - Malaise [None]

NARRATIVE: CASE EVENT DATE: 20170723
